FAERS Safety Report 9800855 (Version 2)
Quarter: 2014Q1

REPORT INFORMATION
  Report Type: Spontaneous
  Country: US (occurrence: US)
  Receive Date: 20140107
  Receipt Date: 20140116
  Transmission Date: 20141002
  Serious: No
  Sender: FDA-Public Use
  Company Number: US-009507513-1401USA000987

PATIENT
  Sex: Female

DRUGS (2)
  1. AZASITE [Suspect]
     Dosage: UNK
     Dates: start: 201401
  2. AZASITE [Suspect]
     Dosage: 1 DROP ONCE DAILY IN EACH EYE
     Dates: start: 201310

REACTIONS (4)
  - Expired drug administered [Unknown]
  - Product quality issue [Unknown]
  - Vision blurred [Not Recovered/Not Resolved]
  - Eye irritation [Not Recovered/Not Resolved]
